FAERS Safety Report 23332537 (Version 1)
Quarter: 2023Q4

REPORT INFORMATION
  Report Type: Other
  Country: CN (occurrence: None)
  Receive Date: 20231222
  Receipt Date: 20231222
  Transmission Date: 20240110
  Serious: Yes (Death)
  Sender: FDA-Public Use
  Company Number: CN-ROCHE-3479738

PATIENT

DRUGS (4)
  1. MYCOPHENOLATE MOFETIL [Suspect]
     Active Substance: MYCOPHENOLATE MOFETIL
     Indication: Prophylaxis against graft versus host disease
     Dosage: DAY-5 TO DAY+30.
     Route: 065
  2. CYCLOSPORINE [Suspect]
     Active Substance: CYCLOSPORINE
     Indication: Prophylaxis against graft versus host disease
     Dosage: 2.5MG/KG TO 3MG/KG ON DAY 5 THEN ORAL GIVEN
     Route: 042
  3. METHOTREXATE [Suspect]
     Active Substance: METHOTREXATE
     Indication: Prophylaxis against graft versus host disease
     Dosage: ON DAY 1
     Route: 042
  4. METHOTREXATE [Suspect]
     Active Substance: METHOTREXATE
     Dosage: ON DAY 3,6 AND 11.
     Route: 042

REACTIONS (5)
  - Bacterial infection [Fatal]
  - Fungal infection [Fatal]
  - Cytomegalovirus infection reactivation [Fatal]
  - Epstein-Barr virus infection reactivation [Fatal]
  - Cystitis haemorrhagic [Fatal]
